FAERS Safety Report 20854712 (Version 1)
Quarter: 2022Q2

REPORT INFORMATION
  Report Type: Spontaneous
  Country: US (occurrence: None)
  Receive Date: 20220519
  Receipt Date: 20220519
  Transmission Date: 20220721
  Serious: Yes (Other)
  Sender: FDA-Public Use
  Company Number: None

PATIENT
  Age: 50 Year
  Sex: Male

DRUGS (1)
  1. EVEROLIMUS [Suspect]
     Active Substance: EVEROLIMUS
     Dosage: 3.75 MG BID ORAL?
     Route: 048
     Dates: start: 202001

REACTIONS (3)
  - Sinusitis [None]
  - Pneumonia [None]
  - Peripheral swelling [None]

NARRATIVE: CASE EVENT DATE: 20220504
